FAERS Safety Report 7227186-8 (Version None)
Quarter: 2011Q1

REPORT INFORMATION
  Report Type: 
  Country: None (occurrence: None)
  Receive Date: 20110114
  Receipt Date: 20110112
  Transmission Date: 20110831
  Serious: Yes (Other)
  Sender: FDA-Public Use
  Company Number: JP-PFIZER INC-2011008188

PATIENT

DRUGS (2)
  1. PAXIL [Concomitant]
     Route: 048
  2. ZYVOX [Suspect]
     Route: 041

REACTIONS (1)
  - DELIRIUM [None]
